FAERS Safety Report 4505208-2 (Version None)
Quarter: 2004Q4

REPORT INFORMATION
  Report Type: 
  Country: None (occurrence: None)
  Receive Date: 20041118
  Receipt Date: 20041118
  Transmission Date: 20050328
  Serious: Yes (Other)
  Sender: FDA-Public Use
  Company Number: None

PATIENT
  Sex: Male
  Weight: 118.8424 kg

DRUGS (7)
  1. LISINOPRIL [Suspect]
     Indication: HYPERTENSION
     Dosage: 1 TAB BID PO
     Route: 048
     Dates: start: 20040811, end: 20041021
  2. GLYBURIDE [Concomitant]
  3. FUROSEMIDE [Concomitant]
  4. METFORMIN HCL [Concomitant]
  5. RABEPRAZOLE SODIUM [Concomitant]
  6. IBUPROFEN [Concomitant]
  7. ACETAMINOPHEN [Concomitant]

REACTIONS (3)
  - ANGIONEUROTIC OEDEMA [None]
  - SWELLING FACE [None]
  - TONGUE OEDEMA [None]
